FAERS Safety Report 23549634 (Version 1)
Quarter: 2024Q1

REPORT INFORMATION
  Report Type: Spontaneous
  Country: US (occurrence: None)
  Receive Date: 20240220
  Receipt Date: 20240220
  Transmission Date: 20240410
  Serious: No
  Sender: FDA-Public Use
  Company Number: None

PATIENT
  Age: 76 Year
  Sex: Female
  Weight: 67.05 kg

DRUGS (5)
  1. EZETIMIBE [Suspect]
     Active Substance: EZETIMIBE
     Indication: Blood cholesterol
     Dates: start: 20240105, end: 20240219
  2. Albuterol Sulfate inhalation Powder called ProAir RespiClick [Concomitant]
  3. FAMOTIDINE [Suspect]
     Active Substance: FAMOTIDINE
  4. CALTRATE [Concomitant]
     Active Substance: CALCIUM CARBONATE
  5. D-2000 [Concomitant]

REACTIONS (6)
  - Fatigue [None]
  - Confusional state [None]
  - Nausea [None]
  - Emotional poverty [None]
  - Pruritus [None]
  - Therapy cessation [None]

NARRATIVE: CASE EVENT DATE: 20240218
